FAERS Safety Report 5019821-X (Version None)
Quarter: 2006Q2

REPORT INFORMATION
  Report Type: 
  Country: None (occurrence: None)
  Receive Date: 20060601
  Receipt Date: 20060519
  Transmission Date: 20061013
  Serious: Yes (Other)
  Sender: FDA-Public Use
  Company Number: 2006068060

PATIENT
  Age: 67 Year
  Sex: Female

DRUGS (2)
  1. ATORVASTATIN CALCIUM [Suspect]
     Indication: LIPID METABOLISM DISORDER
     Dosage: 10 MG (1 IN 1 D), ORAL
     Route: 048
     Dates: end: 20060401
  2. NEBIVOLOL HCL [Concomitant]

REACTIONS (5)
  - ALANINE AMINOTRANSFERASE INCREASED [None]
  - ASPARTATE AMINOTRANSFERASE INCREASED [None]
  - ASTHENIA [None]
  - FALL [None]
  - FOOT FRACTURE [None]
